FAERS Safety Report 23662549 (Version 1)
Quarter: 2024Q1

REPORT INFORMATION
  Report Type: Spontaneous
  Country: GB (occurrence: GB)
  Receive Date: 20240322
  Receipt Date: 20240322
  Transmission Date: 20240410
  Serious: Yes (Disabling, Other)
  Sender: FDA-Public Use
  Company Number: None

PATIENT
  Sex: Male

DRUGS (2)
  1. FINASTERIDE [Suspect]
     Active Substance: FINASTERIDE
     Indication: Alopecia
     Dosage: 0.25 MILLIGRAM, Q2D, (0.25MG EVERY OTHER DAY)
     Route: 065
  2. FINASTERIDE [Suspect]
     Active Substance: FINASTERIDE
     Dosage: UNK (REDUCED DOSE)
     Route: 065

REACTIONS (5)
  - Anhedonia [Not Recovered/Not Resolved]
  - Genital hypoaesthesia [Recovered/Resolved]
  - Erectile dysfunction [Not Recovered/Not Resolved]
  - Libido decreased [Not Recovered/Not Resolved]
  - Testicular pain [Recovered/Resolved]

NARRATIVE: CASE EVENT DATE: 20210916
